FAERS Safety Report 8346692-6 (Version None)
Quarter: 2012Q2

REPORT INFORMATION
  Report Type: 
  Country: None (occurrence: None)
  Receive Date: 20120509
  Receipt Date: 20120508
  Transmission Date: 20120825
  Serious: Yes (Death)
  Sender: FDA-Public Use
  Company Number: PHFR2012GB000447

PATIENT
  Sex: Male

DRUGS (13)
  1. FERROUS SULFATE TAB [Concomitant]
     Dosage: 200 MG, BID
     Route: 048
  2. NICORANDIL [Concomitant]
     Dosage: 10 MG, BID
     Route: 048
  3. SULFASALAZINE [Concomitant]
     Dosage: 500 MG, BID
     Route: 048
  4. CLOZARIL [Suspect]
     Indication: SCHIZOPHRENIA
     Dates: start: 20090326
  5. CALCICHEW D3 FORT [Concomitant]
     Route: 048
  6. ALENDRONIC ACID [Concomitant]
     Dosage: 70 MG, WEEKLY
     Route: 048
  7. CLOPIDOGREL [Concomitant]
     Dosage: 75 MG, TO BE TAKEN EACH MORNING
     Route: 048
  8. ASPIRIN [Concomitant]
     Dosage: 1 DF, QD
     Route: 048
  9. SIMVASTATIN [Concomitant]
     Dosage: 40 MG, QD TO BE TAKEN AT NIGHT
     Route: 048
  10. GELTEARS [Concomitant]
     Dosage: 0.2 %, AS PER ADVICE
  11. METFORMIN HYDROCHLORIDE [Concomitant]
     Route: 048
  12. ACETAMINOPHEN AND CODEINE PHOSPHATE [Concomitant]
     Route: 048
  13. RAMIPRIL [Concomitant]
     Dosage: 10 MG, DAILY
     Route: 048

REACTIONS (1)
  - DEATH [None]
